FAERS Safety Report 16046912 (Version 1)
Quarter: 2019Q1

REPORT INFORMATION
  Report Type: Spontaneous
  Country: US (occurrence: US)
  Receive Date: 20190307
  Receipt Date: 20190307
  Transmission Date: 20190418
  Serious: No
  Sender: FDA-Public Use
  Company Number: US-PFIZER INC-2018525215

PATIENT
  Age: 66 Year
  Sex: Female
  Weight: 69.5 kg

DRUGS (4)
  1. LYRICA [Suspect]
     Active Substance: PREGABALIN
     Indication: RHEUMATOID ARTHRITIS
     Dosage: 75 MG, 2X/DAY
     Route: 048
     Dates: start: 20180330, end: 2018
  2. LYRICA [Suspect]
     Active Substance: PREGABALIN
     Indication: ARTHRALGIA
     Dosage: 100 MG, 1X/DAY (2 CAPSULES IN THE MORNING)
     Route: 048
     Dates: start: 2017
  3. LYRICA [Suspect]
     Active Substance: PREGABALIN
     Indication: PAIN
     Dosage: 50 MG, 2X/DAY (1 IN THE MORNING AND 1 IN THE EVENING)
     Route: 048
  4. LYRICA [Suspect]
     Active Substance: PREGABALIN
     Dosage: 50 MG, 3X/DAY (1 CAPSULE 3 TIMES A DAY)
     Route: 048
     Dates: start: 20181030

REACTIONS (2)
  - Dizziness [Recovered/Resolved]
  - Drug ineffective for unapproved indication [Unknown]
